FAERS Safety Report 24264487 (Version 3)
Quarter: 2025Q4

REPORT INFORMATION
  Report Type: Spontaneous
  Country: EU (occurrence: EU)
  Receive Date: 20240829
  Receipt Date: 20251217
  Transmission Date: 20260117
  Serious: Yes (Other)
  Sender: NOVARTIS
  Company Number: None

PATIENT
  Age: 53 Year
  Sex: Female
  Weight: 54 kg

DRUGS (47)
  1. TYKERB [Suspect]
     Active Substance: LAPATINIB DITOSYLATE
     Indication: HER2 positive breast cancer
     Dosage: 1250 MG, QD
     Route: 048
     Dates: start: 20191125, end: 20191125
  2. NAVELBINE [Suspect]
     Active Substance: VINORELBINE TARTRATE
     Indication: Product used for unknown indication
     Dosage: 65 MG/M2, TIW
     Route: 042
     Dates: start: 20170804, end: 201711
  3. NAVELBINE [Suspect]
     Active Substance: VINORELBINE TARTRATE
     Dosage: 25 MG/M2, Q3W
     Route: 042
     Dates: start: 20200218, end: 20201009
  4. NOLVADEX [Suspect]
     Active Substance: TAMOXIFEN CITRATE
     Indication: HER2 positive breast cancer
     Dosage: 20 MG, QD
     Route: 048
     Dates: start: 201610, end: 201706
  5. XGEVA [Suspect]
     Active Substance: DENOSUMAB
     Indication: HER2 positive breast cancer
     Dosage: 120 MG, Q4W
     Route: 058
     Dates: start: 20181219
  6. HERCEPTIN [Suspect]
     Active Substance: TRASTUZUMAB
     Indication: HER2 positive breast cancer
     Dosage: 24 MG/KG, QD(8.000MG/KG QD)
     Route: 042
     Dates: start: 20170804, end: 20170804
  7. HERCEPTIN [Suspect]
     Active Substance: TRASTUZUMAB
     Dosage: 6 MG/KG, Q3W
     Route: 042
     Dates: start: 20170824, end: 20180808
  8. HERCEPTIN [Suspect]
     Active Substance: TRASTUZUMAB
     Dosage: 18 MG/KG, QW(6.000MG/KG TIW)
     Route: 042
     Dates: start: 20170824, end: 20180808
  9. HERCEPTIN [Suspect]
     Active Substance: TRASTUZUMAB
     Dosage: 1800 MG, QW(600.000MG TIW)
     Route: 042
     Dates: start: 20181219, end: 20191111
  10. HERCEPTIN [Suspect]
     Active Substance: TRASTUZUMAB
     Dosage: 18 MG/KG, QW(6.000MG/KG TIW)
     Route: 042
     Dates: start: 20200218, end: 20201009
  11. HERCEPTIN [Suspect]
     Active Substance: TRASTUZUMAB
     Dosage: 75 MG/M2, QW(25 MG/M2, TIW)
     Route: 042
     Dates: start: 20200218, end: 20201009
  12. CAPECITABINE [Suspect]
     Active Substance: CAPECITABINE
     Indication: HER2 positive breast cancer
     Dosage: 6000 MG, QW(2000 MG,Q3W)
     Route: 048
     Dates: start: 20190530, end: 20191125
  13. PERTUZUMAB [Suspect]
     Active Substance: PERTUZUMAB
     Indication: HER2 positive breast cancer
     Dosage: 840 MG,QD
     Route: 042
     Dates: start: 20170804, end: 20170804
  14. ADO-TRASTUZUMAB EMTANSINE [Suspect]
     Active Substance: ADO-TRASTUZUMAB EMTANSINE
     Indication: HER2 positive breast cancer
     Dosage: 200 MG
     Route: 042
     Dates: start: 20180830, end: 201811
  15. VINORELBINE TARTRATE [Suspect]
     Active Substance: VINORELBINE TARTRATE
     Indication: Product used for unknown indication
     Dosage: 75 MG/M2, TIW
     Route: 042
     Dates: start: 20170804, end: 201711
  16. KADCYLA [Suspect]
     Active Substance: ADO-TRASTUZUMAB EMTANSINE
     Indication: HER2 positive breast cancer
     Dosage: 24 MG/KG, QW (8 MG/KG, QD)
     Route: 042
     Dates: start: 20170804, end: 20170804
  17. KADCYLA [Suspect]
     Active Substance: ADO-TRASTUZUMAB EMTANSINE
     Dosage: 600 MG, QW(200 MG TIW)
     Route: 042
     Dates: start: 20180830, end: 201811
  18. GOSERELIN [Suspect]
     Active Substance: GOSERELIN
     Indication: HER2 positive breast cancer
     Dosage: 3.6 MG, Q4W
     Route: 058
     Dates: start: 201610, end: 201706
  19. GOSERELIN [Suspect]
     Active Substance: GOSERELIN
     Dosage: 18 MG/KG(6 MG/KG, Q3W)
     Route: 065
     Dates: start: 20201208
  20. PERJETA [Suspect]
     Active Substance: PERTUZUMAB
     Indication: HER2 positive breast cancer
     Dosage: 840 MG, QD(840.000MG QD  )
     Route: 042
     Dates: start: 20170804, end: 20170804
  21. PERJETA [Suspect]
     Active Substance: PERTUZUMAB
     Dosage: 1260 MG, QW(420.000MG TIW )
     Route: 042
     Dates: start: 20170824, end: 20180808
  22. PERJETA [Suspect]
     Active Substance: PERTUZUMAB
     Dosage: 1800 MG, QW (600 MG, Q3W)
     Route: 042
     Dates: start: 20181219, end: 20191111
  23. PERJETA [Suspect]
     Active Substance: PERTUZUMAB
     Dosage: 1260 MG, QW(420.000MG TIW  )
     Route: 042
     Dates: start: 20190404, end: 20190624
  24. TAXOTERE [Suspect]
     Active Substance: DOCETAXEL
     Indication: HER2 positive breast cancer
     Dosage: 75 MG/M2, Q3W (OST RECENT DOSE PRIOR TO THE EVENT: 19/DEC/2018)
     Route: 042
     Dates: start: 20170804, end: 201711
  25. TAXOTERE [Suspect]
     Active Substance: DOCETAXEL
     Dosage: 225 MG/M2, QW (MOST RECENT DOSE PRIOR TO THE EVENT: 19/DEC/2018)
     Route: 042
     Dates: start: 20170804, end: 201711
  26. TAXOTERE [Suspect]
     Active Substance: DOCETAXEL
     Dosage: 120 MG, Q3W
     Route: 042
     Dates: start: 20181219, end: 20190503
  27. TAXOTERE [Suspect]
     Active Substance: DOCETAXEL
     Dosage: 360 MG, QW
     Route: 042
     Dates: start: 20181219, end: 20190503
  28. FENTANYL CITRATE [Concomitant]
     Active Substance: FENTANYL CITRATE
     Indication: Product used for unknown indication
     Dosage: UNK
     Route: 065
  29. FENTANYL CITRATE [Concomitant]
     Active Substance: FENTANYL CITRATE
     Dosage: UNK
     Route: 065
  30. XGEVA [Concomitant]
     Active Substance: DENOSUMAB
     Indication: Metastases to spine
     Dosage: 120 MG, QW
     Route: 058
     Dates: start: 201808, end: 20201009
  31. XGEVA [Concomitant]
     Active Substance: DENOSUMAB
     Indication: Product used for unknown indication
     Dosage: 40 MG, QD
     Route: 042
     Dates: start: 20200512, end: 20200528
  32. MORPHINE [Concomitant]
     Active Substance: MORPHINE
     Indication: Product used for unknown indication
     Dosage: UNK
     Route: 065
  33. MORPHINE [Concomitant]
     Active Substance: MORPHINE
     Dosage: 200 MG (200 MG 200 MG, Q3W
     Route: 042
     Dates: start: 20180830, end: 201811
  34. MORPHINE [Concomitant]
     Active Substance: MORPHINE
     Dosage: UNK
     Route: 065
  35. MORPHINE [Concomitant]
     Active Substance: MORPHINE
     Dosage: UNK
     Route: 065
  36. VANCOMYCIN [Concomitant]
     Active Substance: VANCOMYCIN
     Indication: Gastrointestinal bacterial infection
     Dosage: 3.6 MG, Q4W
     Route: 058
     Dates: start: 201610, end: 201706
  37. VANCOMYCIN [Concomitant]
     Active Substance: VANCOMYCIN
     Dosage: 500 MG, QD
     Route: 048
     Dates: start: 20200512, end: 20200528
  38. XGEVA [Concomitant]
     Active Substance: DENOSUMAB
     Indication: Metastases to spine
     Dosage: 120 MG, QW
     Route: 058
     Dates: start: 201808, end: 20201009
  39. METRONIDAZOLE [Concomitant]
     Active Substance: METRONIDAZOLE
     Indication: Gastrointestinal bacterial infection
     Dosage: 250 MG
     Route: 042
     Dates: start: 20200421, end: 20200508
  40. METRONIDAZOLE [Concomitant]
     Active Substance: METRONIDAZOLE
     Dosage: 1500 MG
     Route: 048
     Dates: start: 20200512, end: 20200518
  41. MANNITOL [Concomitant]
     Active Substance: MANNITOL
     Indication: Product used for unknown indication
     Dosage: 6 MG/KG, Q3W
     Route: 042
     Dates: start: 20170824, end: 20180808
  42. MANNITOL [Concomitant]
     Active Substance: MANNITOL
     Dosage: 250 MG
     Route: 042
     Dates: start: 20200421, end: 20200508
  43. GENTAMICIN [Concomitant]
     Active Substance: GENTAMICIN
     Indication: Paraparesis
     Dosage: 420 MG, Q3W
     Route: 042
     Dates: start: 20170824, end: 20180808
  44. GENTAMICIN [Concomitant]
     Active Substance: GENTAMICIN
     Dosage: 420 MG (0.5 DAY)
     Route: 042
     Dates: start: 20200421, end: 20200508
  45. FAMOTIDINE [Concomitant]
     Active Substance: FAMOTIDINE
     Indication: Gastrointestinal bacterial infection
     Dosage: 40 MG, QD
     Route: 042
     Dates: start: 20200512, end: 20200528
  46. RINGERS SOLUTION [Concomitant]
     Active Substance: CALCIUM CHLORIDE\POTASSIUM CHLORIDE\SODIUM CHLORIDE
     Indication: Paraparesis
     Dosage: 840 MG, QD
     Route: 042
     Dates: start: 20170804, end: 20170804
  47. RINGERS SOLUTION [Concomitant]
     Active Substance: CALCIUM CHLORIDE\POTASSIUM CHLORIDE\SODIUM CHLORIDE
     Indication: Product used for unknown indication
     Dosage: 500 MG
     Route: 042
     Dates: start: 20200421, end: 20200508

REACTIONS (4)
  - Gastrointestinal bacterial infection [Recovered/Resolved]
  - Compression fracture [Recovered/Resolved]
  - Paraparesis [Recovered/Resolved]
  - Pelvic pain [Not Recovered/Not Resolved]

NARRATIVE: CASE EVENT DATE: 20191201
